FAERS Safety Report 7682952-X (Version None)
Quarter: 2011Q3

REPORT INFORMATION
  Report Type: 
  Country: None (occurrence: None)
  Receive Date: 20110815
  Receipt Date: 20110810
  Transmission Date: 20111222
  Serious: Yes (Hospitalization, Other)
  Sender: FDA-Public Use
  Company Number: JP-B.I. PHARMACEUTICALS,INC./RIDGEFIELD-2011-BP-19643NB

PATIENT
  Age: 86 Year
  Sex: Female

DRUGS (5)
  1. PIMOBENDAN [Concomitant]
     Indication: CARDIAC FAILURE
     Dosage: 1 ANZ
     Route: 048
  2. EPLERENONE [Concomitant]
     Indication: CARDIAC FAILURE
     Dosage: 1 ANZ
     Route: 048
  3. PRADAXA [Suspect]
     Indication: ATRIAL FIBRILLATION
     Dosage: 220 MG
     Route: 048
     Dates: start: 20110618, end: 20110807
  4. DIART [Concomitant]
     Indication: CARDIAC FAILURE
     Dosage: 0.5 ANZ
     Route: 048
  5. FAMOTIDINE D [Concomitant]
     Indication: GASTRIC ULCER
     Dosage: 2 ANZ
     Route: 048

REACTIONS (2)
  - URINARY TRACT INFECTION [None]
  - SUBDURAL HAEMATOMA [None]
